FAERS Safety Report 5825528-9 (Version None)
Quarter: 2008Q3

REPORT INFORMATION
  Report Type: 
  Country: None (occurrence: None)
  Receive Date: 20080724
  Receipt Date: 20080724
  Transmission Date: 20090109
  Serious: Yes (Hospitalization)
  Sender: FDA-Public Use
  Company Number: None

PATIENT
  Age: 76 Year
  Sex: Male
  Weight: 81.1 kg

DRUGS (11)
  1. MITOXANTRONE [Suspect]
     Indication: PROSTATE CANCER
     Dosage: 12 MG/M2 - INTRAVENOUS DRIP
     Route: 041
     Dates: start: 20080625, end: 20080625
  2. PREDNISONE [Suspect]
     Dosage: 20 MG
  3. FUROSEMIDE [Concomitant]
  4. ALBUTEROL SULFATE [Concomitant]
  5. ACETYLSALICYLIC ACID SRT [Concomitant]
  6. IPRATROPIUM BROMIDE [Concomitant]
  7. PROCHLORPERAZINE EDISYLATE [Concomitant]
  8. LEVOTHYROXINE SODIUM [Concomitant]
  9. LISINOPRIL [Concomitant]
  10. BUDESONIDE [Concomitant]
  11. SIMVASTATIN [Concomitant]

REACTIONS (1)
  - PULMONARY EMBOLISM [None]
